FAERS Safety Report 7711555-3 (Version None)
Quarter: 2011Q3

REPORT INFORMATION
  Report Type: 
  Country: None (occurrence: None)
  Receive Date: 20110826
  Receipt Date: 20110820
  Transmission Date: 20111222
  Serious: Yes (Other)
  Sender: FDA-Public Use
  Company Number: US-JNJFOC-20101204236

PATIENT
  Sex: Female
  Weight: 102.06 kg

DRUGS (1)
  1. REMICADE [Suspect]
     Indication: COLITIS ULCERATIVE
     Route: 042
     Dates: start: 20100201, end: 20100901

REACTIONS (1)
  - SYSTEMIC LUPUS ERYTHEMATOSUS [None]
